FAERS Safety Report 16393406 (Version 1)
Quarter: 2019Q2

REPORT INFORMATION
  Report Type: Other
  Country: GB (occurrence: GB)
  Receive Date: 20190605
  Receipt Date: 20190605
  Transmission Date: 20190711
  Serious: Yes (Hospitalization, Disabling)
  Sender: FDA-Public Use
  Company Number: GB-HERITAGE PHARMACEUTICALS-2019HTG00253

PATIENT
  Age: 27 Year
  Sex: Male

DRUGS (5)
  1. METHOCARBAMOL. [Concomitant]
     Active Substance: METHOCARBAMOL
     Dosage: UNK
     Dates: start: 201812
  2. FLUOXETINE [Suspect]
     Active Substance: FLUOXETINE HYDROCHLORIDE
     Dosage: 20 MG, 1X/DAY
     Dates: start: 20181219, end: 20190114
  3. AMITRIPTYLINE [Suspect]
     Active Substance: AMITRIPTYLINE
     Indication: PAIN
  4. FLUOXETINE [Suspect]
     Active Substance: FLUOXETINE HYDROCHLORIDE
     Indication: DEPRESSION
     Dosage: 40 MG, 1X/DAY
     Dates: start: 20190115, end: 20190411
  5. LEMSIP COLD AND FLU [Concomitant]
     Dosage: UNK
     Dates: start: 201812

REACTIONS (9)
  - Dyspnoea [Recovered/Resolved]
  - Dyskinesia [Recovered/Resolved]
  - Coordination abnormal [Recovered/Resolved]
  - Muscle twitching [Recovered/Resolved]
  - Balance disorder [Recovered/Resolved]
  - Memory impairment [Recovering/Resolving]
  - Bruxism [Recovering/Resolving]
  - Palpitations [Recovered/Resolved]
  - Jaw disorder [Recovering/Resolving]

NARRATIVE: CASE EVENT DATE: 20181219
